FAERS Safety Report 8143177-7 (Version None)
Quarter: 2012Q1

REPORT INFORMATION
  Report Type: 
  Country: None (occurrence: None)
  Receive Date: 20120217
  Receipt Date: 20120214
  Transmission Date: 20120608
  Serious: No
  Sender: FDA-Public Use
  Company Number: US-PFIZER INC-2012040126

PATIENT
  Sex: Female
  Weight: 52.15 kg

DRUGS (2)
  1. AMOXICILLIN [Concomitant]
     Indication: DIVERTICULITIS
     Dosage: UNK
  2. ESTRING [Suspect]
     Indication: VULVOVAGINAL DRYNESS
     Dosage: UNK
     Dates: start: 20120210

REACTIONS (1)
  - DRUG INEFFECTIVE [None]
